FAERS Safety Report 9420413 (Version 1)
Quarter: 2013Q3

REPORT INFORMATION
  Report Type: Spontaneous
  Country: US (occurrence: US)
  Receive Date: 20130725
  Receipt Date: 20130725
  Transmission Date: 20140515
  Serious: No
  Sender: FDA-Public Use
  Company Number: US-ABBOTT-13P-163-1069650-00

PATIENT
  Age: 70 Year
  Sex: Female

DRUGS (5)
  1. SYNTHROID [Suspect]
     Indication: PRODUCT USED FOR UNKNOWN INDICATION
  2. SYNTHROID [Suspect]
     Dosage: 88MG
  3. SYNTHROID [Suspect]
     Dosage: 88 MCG 6X/WEEK, 132 MCG 1/WEEK (1.5 TAB)
     Dates: end: 201111
  4. SYNTHROID [Suspect]
     Dosage: 100 MCG 1/WEEK, 88 MCG 6X/WEEK
     Dates: end: 201211
  5. SYNTHROID [Suspect]
     Dosage: 100 MCG 2/WEEK, 88 MCG 5X/WEEK
     Dates: start: 201211

REACTIONS (10)
  - Acute stress disorder [Not Recovered/Not Resolved]
  - Blood thyroid stimulating hormone decreased [Recovered/Resolved]
  - Blood thyroid stimulating hormone increased [Recovered/Resolved]
  - Feeling jittery [Not Recovered/Not Resolved]
  - Hot flush [Not Recovered/Not Resolved]
  - Insomnia [Not Recovered/Not Resolved]
  - Tachycardia [Not Recovered/Not Resolved]
  - Bruxism [Not Recovered/Not Resolved]
  - Hypervigilance [Not Recovered/Not Resolved]
  - Poor quality sleep [Not Recovered/Not Resolved]
